FAERS Safety Report 4902690-3 (Version None)
Quarter: 2006Q1

REPORT INFORMATION
  Report Type: 
  Country: None (occurrence: None)
  Receive Date: 20060207
  Receipt Date: 20060126
  Transmission Date: 20060701
  Serious: Yes (Other)
  Sender: FDA-Public Use
  Company Number: US-ROCHE-434097

PATIENT
  Age: 53 Year
  Sex: Male

DRUGS (3)
  1. PEGASYS [Suspect]
     Route: 065
     Dates: start: 20060120
  2. RIBAVIRIN [Suspect]
     Dosage: MANUFACTURER UNKNOWN
     Route: 065
     Dates: start: 20060120
  3. WATER PILL NOS [Concomitant]
     Indication: FLUID RETENTION
     Route: 048

REACTIONS (1)
  - NEPHROLITHIASIS [None]
